FAERS Safety Report 4825003-4 (Version None)
Quarter: 2005Q4

REPORT INFORMATION
  Report Type: 
  Country: None (occurrence: None)
  Receive Date: 20051014
  Receipt Date: 20050804
  Transmission Date: 20060501
  Serious: Yes (Other)
  Sender: FDA-Public Use
  Company Number: 2005068969

PATIENT
  Age: 93 Year
  Sex: Male

DRUGS (5)
  1. MACUGEN [Suspect]
     Indication: MACULAR DEGENERATION
     Dosage: 0.3 MG (0.3 MG, 1 IN 6 WK)
     Dates: start: 20050415, end: 20050415
  2. NEURONTIN [Concomitant]
  3. AMBIEN [Concomitant]
  4. DARVOCET [Concomitant]
  5. GLYCERYL TRINITRATE [Concomitant]

REACTIONS (2)
  - OPTIC ISCHAEMIC NEUROPATHY [None]
  - VISUAL ACUITY REDUCED [None]
